FAERS Safety Report 25820909 (Version 1)
Quarter: 2025Q3

REPORT INFORMATION
  Report Type: Report from Study
  Country: CO (occurrence: EU)
  Receive Date: 20250919
  Receipt Date: 20250919
  Transmission Date: 20251020
  Serious: Yes (Death, Hospitalization, Other)
  Sender: ABBVIE
  Company Number: CO-ABBVIE-6465301

PATIENT
  Age: 82 Year
  Sex: Male
  Weight: 57 kg

DRUGS (2)
  1. VENCLEXTA [Suspect]
     Active Substance: VENETOCLAX
     Indication: Chronic lymphocytic leukaemia
     Route: 048
     Dates: start: 2021, end: 2023
  2. VENCLEXTA [Suspect]
     Active Substance: VENETOCLAX
     Indication: Chronic lymphocytic leukaemia
     Dosage: END DATE OF TREATMENT: 2025 (RECEIVED MEDICATION UNTIL THE BEGINNING OF FEB 2025 HOWEVER, HE HAD ...
     Route: 048
     Dates: start: 20250103

REACTIONS (5)
  - Death [Fatal]
  - Gastrointestinal haemorrhage [Recovered/Resolved]
  - Chronic lymphocytic leukaemia recurrent [Recovered/Resolved]
  - Chronic lymphocytic leukaemia [Unknown]
  - Incorrect dose administered [Recovered/Resolved]

NARRATIVE: CASE EVENT DATE: 20230101
